FAERS Safety Report 7511424-8 (Version None)
Quarter: 2011Q2

REPORT INFORMATION
  Report Type: 
  Country: None (occurrence: None)
  Receive Date: 20110531
  Receipt Date: 20110518
  Transmission Date: 20111010
  Serious: Yes (Other)
  Sender: FDA-Public Use
  Company Number: MX-US-EMD SERONO, INC.-7054391

PATIENT
  Sex: Male
  Weight: 53 kg

DRUGS (2)
  1. SAIZEN [Suspect]
     Indication: BODY HEIGHT BELOW NORMAL
     Route: 058
     Dates: start: 20110119, end: 20110413
  2. SAIZEN [Suspect]
     Route: 058
     Dates: start: 20110414

REACTIONS (5)
  - NIPPLE DISORDER [None]
  - INJECTION SITE PAIN [None]
  - GYNAECOMASTIA [None]
  - BREAST ABSCESS [None]
  - IRRITABILITY [None]
